FAERS Safety Report 7024339-9 (Version None)
Quarter: 2010Q4

REPORT INFORMATION
  Report Type: 
  Country: None (occurrence: None)
  Receive Date: 20101001
  Receipt Date: 20100922
  Transmission Date: 20110411
  Serious: Yes (Hospitalization)
  Sender: FDA-Public Use
  Company Number: FR-PFIZER INC-2010120493

PATIENT
  Age: 75 Year
  Sex: Female

DRUGS (11)
  1. CEFPODOXIME PROXETIL [Suspect]
     Dosage: 100 MG, 2X/DAY
     Route: 048
     Dates: start: 20100728, end: 20100804
  2. PYOSTACINE [Suspect]
     Dosage: 500 MG, 3X/DAY
     Route: 048
     Dates: start: 20100726, end: 20100804
  3. ALLOPURINOL [Suspect]
     Dosage: 300 MG, DAILY
     Route: 048
     Dates: start: 20100630, end: 20100804
  4. ESIDRIX [Suspect]
     Dosage: 25 MG, DAILY
     Route: 048
     Dates: start: 20100726, end: 20100804
  5. NOCTRAN 10 [Suspect]
     Dosage: 10 MG, DAILY
     Route: 048
     Dates: start: 20100730, end: 20100807
  6. PRAVASTATIN [Concomitant]
     Dosage: UNK
  7. KENZEN [Concomitant]
     Dosage: UNK
  8. LASIX [Concomitant]
     Dosage: UNK
  9. TEMESTA [Concomitant]
     Dosage: UNK
  10. CARDENSIEL [Concomitant]
     Dosage: UNK
  11. ASPEGIC 1000 [Concomitant]
     Dosage: UNK

REACTIONS (2)
  - EOSINOPHILIA [None]
  - RASH MORBILLIFORM [None]
